FAERS Safety Report 9621104 (Version 1)
Quarter: 2013Q4

REPORT INFORMATION
  Report Type: Spontaneous
  Country: US (occurrence: US)
  Receive Date: 20131015
  Receipt Date: 20131015
  Transmission Date: 20140711
  Serious: No
  Sender: FDA-Public Use
  Company Number: US-009507513-1307USA004609

PATIENT
  Sex: Male

DRUGS (1)
  1. MIRALAX [Suspect]
     Indication: CONSTIPATION
     Dosage: 10 MG, PRN
     Route: 048
     Dates: start: 201210

REACTIONS (3)
  - Infrequent bowel movements [Unknown]
  - Diarrhoea [Unknown]
  - Underdose [Unknown]
